FAERS Safety Report 4735455-6 (Version None)
Quarter: 2005Q3

REPORT INFORMATION
  Report Type: 
  Country: None (occurrence: None)
  Receive Date: 20050802
  Receipt Date: 20050719
  Transmission Date: 20060218
  Serious: Yes (Hospitalization)
  Sender: FDA-Public Use
  Company Number: 2005-0008358

PATIENT
  Age: 38 Year
  Sex: Male

DRUGS (4)
  1. VIREAD [Suspect]
     Indication: HIV INFECTION
     Dosage: 300 MG, 1 IN 1 D, ORAL
     Route: 048
     Dates: start: 20031015
  2. EPIVIR [Concomitant]
  3. SUSTIVA [Concomitant]
  4. MULTIVITAMIN [Concomitant]

REACTIONS (3)
  - EPIDIDYMITIS [None]
  - ORCHITIS [None]
  - SCROTAL ABSCESS [None]
